FAERS Safety Report 8938923 (Version 1)
Quarter: 2012Q4

REPORT INFORMATION
  Report Type: 
  Country: US (occurrence: US)
  Receive Date: 20121203
  Receipt Date: 20121203
  Transmission Date: 20130627
  Serious: Yes (Other)
  Sender: FDA-Public Use
  Company Number: US-SANOFI-AVENTIS-2012SA087438

PATIENT
  Sex: Female

DRUGS (1)
  1. LANTUS [Suspect]
     Dosage: Dose:50 unit(s)
     Route: 058
     Dates: end: 201211

REACTIONS (2)
  - Neoplasm malignant [Unknown]
  - Hyperglycaemia [Unknown]
